FAERS Safety Report 20926443 (Version 1)
Quarter: 2022Q2

REPORT INFORMATION
  Report Type: Spontaneous
  Country: US (occurrence: US)
  Receive Date: 20220607
  Receipt Date: 20220607
  Transmission Date: 20220720
  Serious: No
  Sender: FDA-Public Use
  Company Number: US-METUCHEN-STN-2021-0159

PATIENT
  Age: 66 Year
  Sex: Male
  Weight: 69.008 kg

DRUGS (3)
  1. STENDRA [Suspect]
     Active Substance: AVANAFIL
     Indication: Erectile dysfunction
     Route: 048
     Dates: start: 20210607, end: 20210616
  2. STENDRA [Suspect]
     Active Substance: AVANAFIL
     Dosage: SPLIT A 200MG TABLET IN HALF
     Route: 048
     Dates: start: 20210623
  3. AMLODIPINE [Concomitant]
     Active Substance: AMLODIPINE BESYLATE
     Indication: Product used for unknown indication

REACTIONS (5)
  - Adverse drug reaction [Recovered/Resolved]
  - Muscle spasms [Recovered/Resolved]
  - Reaction to excipient [Recovered/Resolved]
  - Wrong technique in product usage process [Unknown]
  - Diarrhoea [Recovered/Resolved]

NARRATIVE: CASE EVENT DATE: 20210601
